FAERS Safety Report 5249794-6 (Version None)
Quarter: 2007Q1

REPORT INFORMATION
  Report Type: 
  Country: None (occurrence: None)
  Receive Date: 20061201
  Receipt Date: 20060821
  Transmission Date: 20070707
  Serious: No
  Sender: FDA-Public Use
  Company Number: 2006PV019900

PATIENT
  Age: 66 Year
  Sex: Female
  Weight: 69.4003 kg

DRUGS (2)
  1. BYETTA [Suspect]
     Indication: DIABETES MELLITUS NON-INSULIN-DEPENDENT
     Dosage: 5 MCG; BID; SC
     Route: 058
     Dates: start: 20060819
  2. GLUCOPHAGE [Concomitant]

REACTIONS (6)
  - DYSPEPSIA [None]
  - HUNGER [None]
  - LISTLESS [None]
  - NAUSEA [None]
  - VISION BLURRED [None]
  - VISUAL ACUITY REDUCED [None]
